FAERS Safety Report 6924406-1 (Version None)
Quarter: 2010Q3

REPORT INFORMATION
  Report Type: 
  Country: None (occurrence: None)
  Receive Date: 20100723
  Receipt Date: 20100708
  Transmission Date: 20110219
  Serious: Yes (Other)
  Sender: FDA-Public Use
  Company Number: 20100708CINRY1547

PATIENT
  Age: 31 Year
  Sex: Female

DRUGS (6)
  1. CINRYZE [Suspect]
     Indication: HEREDITARY ANGIOEDEMA
     Dosage: 1000 UNIT, 2 IN 1 WK, INTRAVENOUS
     Route: 042
     Dates: start: 20090601
  2. CINRYZE [Suspect]
     Indication: PROPHYLAXIS
     Dosage: 1000 UNIT, 2 IN 1 WK, INTRAVENOUS
     Route: 042
     Dates: start: 20090601
  3. ATIVAN [Concomitant]
  4. NASONEX [Concomitant]
  5. DANAZOL [Concomitant]
  6. ALBUTEROL HFA (SALBUTAMOL) [Concomitant]

REACTIONS (6)
  - BLINDNESS TRANSIENT [None]
  - CRANIAL NERVE DISORDER [None]
  - HEREDITARY ANGIOEDEMA [None]
  - MIGRAINE [None]
  - OCULAR HYPERAEMIA [None]
  - STRESS [None]
